FAERS Safety Report 8771458 (Version 1)
Quarter: 2012Q4

REPORT INFORMATION
  Report Type: 
  Country: VE (occurrence: VE)
  Receive Date: 20120906
  Receipt Date: 20120906
  Transmission Date: 20130627
  Serious: Yes (Death)
  Sender: FDA-Public Use
  Company Number: PHHY2012VE077139

PATIENT
  Age: 67 Year
  Sex: Female

DRUGS (1)
  1. ACLASTA [Suspect]
     Indication: OSTEOPOROSIS
     Dosage: 5 mg
     Route: 042
     Dates: start: 2010

REACTIONS (4)
  - Cerebral haemorrhage [Fatal]
  - Feeling abnormal [Unknown]
  - Neck pain [Unknown]
  - Pain in jaw [Unknown]
